FAERS Safety Report 6051557-9 (Version None)
Quarter: 2009Q1

REPORT INFORMATION
  Report Type: 
  Country: None (occurrence: None)
  Receive Date: 20090126
  Receipt Date: 20090119
  Transmission Date: 20090719
  Serious: Yes (Hospitalization)
  Sender: FDA-Public Use
  Company Number: B0551244A

PATIENT
  Age: 82 Year
  Sex: Male

DRUGS (12)
  1. AVODART [Suspect]
     Dosage: .5MG PER DAY
     Route: 048
  2. AUGMENTIN '125' [Suspect]
     Indication: LUNG INFECTION
     Route: 065
     Dates: start: 20080201, end: 20080201
  3. CARDENSIEL [Suspect]
     Dosage: 1.25MG PER DAY
     Route: 048
  4. HEMIGOXINE [Suspect]
     Dosage: .125MG PER DAY
     Route: 048
  5. MONOTILDIEM LP 300 MG [Suspect]
     Dosage: 300MG PER DAY
     Route: 048
  6. NOVONORM [Suspect]
     Dosage: .5MG TWICE PER DAY
     Route: 048
  7. PERMIXON [Suspect]
     Indication: MICTURITION DISORDER
     Dosage: 160MG TWICE PER DAY
     Route: 048
  8. LASILIX [Suspect]
     Dosage: 80MG PER DAY
     Route: 048
     Dates: end: 20080327
  9. LERCAN [Suspect]
     Dosage: 10MG PER DAY
     Route: 048
     Dates: end: 20080327
  10. PREVISCAN [Suspect]
     Indication: PULMONARY EMBOLISM
     Dosage: 15MG PER DAY
     Route: 048
  11. TAVANIC [Suspect]
     Indication: LUNG INFECTION
     Route: 065
     Dates: start: 20080201, end: 20080201
  12. ROCEPHIN [Suspect]
     Indication: LUNG INFECTION
     Route: 065
     Dates: start: 20080201, end: 20080201

REACTIONS (5)
  - ECZEMA [None]
  - EOSINOPHILIA [None]
  - HYPERSENSITIVITY [None]
  - PITTING OEDEMA [None]
  - TOXIC SKIN ERUPTION [None]
